FAERS Safety Report 5265570-2 (Version None)
Quarter: 2007Q1

REPORT INFORMATION
  Report Type: 
  Country: None (occurrence: None)
  Receive Date: 20061213
  Receipt Date: 20040408
  Transmission Date: 20070707
  Serious: Yes (Other)
  Sender: FDA-Public Use
  Company Number: 2004UW07172

PATIENT
  Age: 64 Year
  Sex: Male
  Weight: 116.1208 kg

DRUGS (17)
  1. IRESSA [Suspect]
     Indication: LUNG NEOPLASM MALIGNANT
     Dosage: 250 MG PO
     Route: 048
     Dates: start: 20040330
  2. PROZAC [Concomitant]
  3. VERAPAMIL [Concomitant]
  4. PREDNISONE [Concomitant]
  5. ACCOLATE [Concomitant]
  6. SINGULAIR [Concomitant]
  7. CLARINEX /USA/ [Concomitant]
  8. DIGOXIN [Concomitant]
  9. FLOMAX [Concomitant]
  10. CYCLOSPORINE [Concomitant]
  11. PRILOSEC [Concomitant]
  12. XANAX [Concomitant]
  13. PERCOCET [Concomitant]
  14. COMBIVENT [Concomitant]
  15. ADVAIR DISKUS 100/50 [Concomitant]
  16. PROVENTIL-HFA [Concomitant]
  17. VITAMIN E [Concomitant]

REACTIONS (2)
  - ASTHMA [None]
  - URTICARIA [None]
